FAERS Safety Report 4452528-6 (Version None)
Quarter: 2004Q3

REPORT INFORMATION
  Report Type: 
  Country: None (occurrence: None)
  Receive Date: 20040813
  Receipt Date: 20040505
  Transmission Date: 20050211
  Serious: Yes (Other)
  Sender: FDA-Public Use
  Company Number: PHEH2004US05016

PATIENT
  Age: 78 Year
  Sex: Female

DRUGS (2)
  1. VISUDYNE [Suspect]
     Indication: MACULAR DEGENERATION
     Dosage: 2 MG/ML ONCE IV
     Route: 042
     Dates: start: 20030201, end: 20030201
  2. VISUDYNE [Suspect]
     Indication: MACULAR DEGENERATION
     Dosage: 2 MG/ML ONCE IV
     Route: 042
     Dates: start: 20030523, end: 20030523

REACTIONS (2)
  - BACK PAIN [None]
  - VISUAL ACUITY REDUCED [None]
